FAERS Safety Report 5041559-3 (Version None)
Quarter: 2006Q2

REPORT INFORMATION
  Report Type: 
  Country: None (occurrence: None)
  Receive Date: 20060627
  Receipt Date: 20060614
  Transmission Date: 20061013
  Serious: Yes (Other)
  Sender: FDA-Public Use
  Company Number: 2006075974

PATIENT
  Age: 65 Year
  Sex: Female

DRUGS (1)
  1. GEODON [Suspect]
     Indication: DEPRESSION
     Dates: start: 20060101

REACTIONS (1)
  - GLAUCOMA [None]
